FAERS Safety Report 12640072 (Version 1)
Quarter: 2016Q3

REPORT INFORMATION
  Report Type: Spontaneous
  Country: US (occurrence: None)
  Receive Date: 20160809
  Receipt Date: 20160809
  Transmission Date: 20161109
  Serious: Yes (Other)
  Sender: FDA-Public Use
  Company Number: None

PATIENT

DRUGS (1)
  1. PROTAMINE [Suspect]
     Active Substance: PROTAMINE
     Route: 040
     Dates: start: 20160701, end: 20160808

REACTIONS (1)
  - Continuous positive airway pressure [None]

NARRATIVE: CASE EVENT DATE: 20160808
